FAERS Safety Report 21323482 (Version 1)
Quarter: 2022Q3

REPORT INFORMATION
  Report Type: Spontaneous
  Country: US (occurrence: None)
  Receive Date: 20220911
  Receipt Date: 20220911
  Transmission Date: 20221026
  Serious: Yes (Other)
  Sender: FDA-Public Use
  Company Number: None

PATIENT
  Age: 22 Year
  Sex: Female
  Weight: 71.67 kg

DRUGS (4)
  1. KYLEENA [Suspect]
     Active Substance: LEVONORGESTREL
     Dates: start: 20190408, end: 20210528
  2. TYLENOL [Concomitant]
     Active Substance: ACETAMINOPHEN
  3. ASPIRIN [Concomitant]
     Active Substance: ASPIRIN
  4. DAILY PROBIOTIC [Concomitant]

REACTIONS (3)
  - Vaginal haemorrhage [None]
  - Complication associated with device [None]
  - Pregnancy [None]

NARRATIVE: CASE EVENT DATE: 20210305
